FAERS Safety Report 6386873-4 (Version None)
Quarter: 2009Q4

REPORT INFORMATION
  Report Type: 
  Country: None (occurrence: None)
  Receive Date: 20091002
  Receipt Date: 20090923
  Transmission Date: 20100525
  Serious: Yes (Other)
  Sender: FDA-Public Use
  Company Number: US-ASTRAZENECA-2009SE10801

PATIENT
  Age: 65 Year
  Sex: Male

DRUGS (3)
  1. CRESTOR [Suspect]
     Dosage: SPLITTING A 40 MG TABLET AND A 20 MG TABLET TO BE TAKEN EACH DAY
     Route: 048
     Dates: start: 20050101
  2. CRESTOR [Suspect]
     Dosage: 40 MG ONE DAY AND 20 MG THE NEXT ALTERNATING BETWEEN THE TWO
     Route: 048
  3. PLAVIX [Concomitant]

REACTIONS (4)
  - DEVICE OCCLUSION [None]
  - INCORRECT DOSE ADMINISTERED [None]
  - MYOCARDIAL INFARCTION [None]
  - SKIN CANCER [None]
